FAERS Safety Report 9351138 (Version 2)
Quarter: 2013Q3

REPORT INFORMATION
  Report Type: Spontaneous
  Country: IT (occurrence: IT)
  Receive Date: 20130617
  Receipt Date: 20130717
  Transmission Date: 20140515
  Serious: Yes (Other)
  Sender: FDA-Public Use
  Company Number: IT-UCBSA-088175

PATIENT
  Age: 43 Year
  Sex: Female

DRUGS (2)
  1. KEPPRA [Suspect]
     Indication: PARTIAL SEIZURES
     Dosage: 2 G DAILY (1000MG 30 TABLETS)
     Route: 048
     Dates: start: 20051129, end: 20130110
  2. TEGRETOL [Concomitant]
     Indication: PARTIAL SEIZURES
     Dosage: 400MG MODIFIED RELAESE TABLETS
     Route: 048
     Dates: start: 20000504, end: 20130531

REACTIONS (1)
  - Thrombocytopenia [Recovered/Resolved]
